FAERS Safety Report 9823369 (Version 2)
Quarter: 2014Q1

REPORT INFORMATION
  Report Type: Report from Study
  Country: AT (occurrence: AT)
  Receive Date: 20140116
  Receipt Date: 20140210
  Transmission Date: 20141002
  Serious: Yes (Hospitalization)
  Sender: FDA-Public Use
  Company Number: AT-US-EMD SERONO, INC.-7262862

PATIENT
  Age: 38 Year
  Sex: Female
  Weight: 77 kg

DRUGS (2)
  1. REBIF [Suspect]
     Indication: RELAPSING-REMITTING MULTIPLE SCLEROSIS
     Dates: start: 20121221, end: 20130725
  2. SERACTIL [Concomitant]
     Indication: ADVERSE DRUG REACTION
     Route: 048

REACTIONS (1)
  - Injection site necrosis [Recovered/Resolved]
